FAERS Safety Report 6590417-1 (Version None)
Quarter: 2010Q1

REPORT INFORMATION
  Report Type: 
  Country: None (occurrence: None)
  Receive Date: 20100219
  Receipt Date: 20100216
  Transmission Date: 20100710
  Serious: Yes (Other)
  Sender: FDA-Public Use
  Company Number: B0630937A

PATIENT
  Age: 28 Year
  Sex: Female
  Weight: 48 kg

DRUGS (5)
  1. ZANAMIVIR [Suspect]
     Dosage: 2PUFF PER DAY
     Route: 055
     Dates: start: 20091012, end: 20100104
  2. AMOXICILLIN [Concomitant]
     Indication: UPPER RESPIRATORY TRACT INFECTION
     Dosage: 500MG THREE TIMES PER DAY
     Route: 048
     Dates: start: 20091119, end: 20091126
  3. LORATADINE [Concomitant]
     Indication: UPPER RESPIRATORY TRACT INFECTION
     Dosage: 10MG PER DAY
     Route: 048
     Dates: start: 20091119, end: 20091129
  4. AMBROXOL [Concomitant]
     Indication: UPPER RESPIRATORY TRACT INFECTION
     Dosage: 30MG THREE TIMES PER DAY
     Route: 048
     Dates: start: 20091119, end: 20091126
  5. ACETAMINOPHEN [Concomitant]
     Indication: UPPER RESPIRATORY TRACT INFECTION
     Dosage: 500MG AS REQUIRED
     Route: 048
     Dates: start: 20091119, end: 20091120

REACTIONS (3)
  - ABORTION COMPLETE [None]
  - DRUG EXPOSURE DURING PREGNANCY [None]
  - VAGINAL HAEMORRHAGE [None]
